FAERS Safety Report 23775939 (Version 1)
Quarter: 2024Q2

REPORT INFORMATION
  Report Type: Spontaneous
  Country: US (occurrence: None)
  Receive Date: 20240424
  Receipt Date: 20240424
  Transmission Date: 20240715
  Serious: No
  Sender: FDA-Public Use
  Company Number: 2024A089808

PATIENT
  Age: 26118 Day
  Sex: Male
  Weight: 95.3 kg

DRUGS (1)
  1. FARXIGA [Suspect]
     Active Substance: DAPAGLIFLOZIN PROPANEDIOL
     Indication: Diabetes mellitus
     Route: 048
     Dates: start: 20231227, end: 20240315

REACTIONS (4)
  - Balanitis candida [Recovering/Resolving]
  - Dysuria [Recovering/Resolving]
  - Penile haemorrhage [Unknown]
  - Genital pain [Recovering/Resolving]

NARRATIVE: CASE EVENT DATE: 20240214
